FAERS Safety Report 9840804 (Version 1)
Quarter: 2014Q1

REPORT INFORMATION
  Report Type: Report from Study
  Country: CA (occurrence: CA)
  Receive Date: 20140124
  Receipt Date: 20140124
  Transmission Date: 20141002
  Serious: Yes (Other)
  Sender: FDA-Public Use
  Company Number: PHHY2014CA007027

PATIENT
  Sex: Female

DRUGS (1)
  1. ZOMETA [Suspect]
     Indication: BREAST CANCER
     Dosage: 4 MG, EVERY 12 MONTHS
     Route: 042
     Dates: start: 20120127

REACTIONS (2)
  - Breast mass [Unknown]
  - Inappropriate schedule of drug administration [Unknown]
